FAERS Safety Report 6861412-X (Version None)
Quarter: 2010Q3

REPORT INFORMATION
  Report Type: 
  Country: None (occurrence: None)
  Receive Date: 20100716
  Receipt Date: 20100706
  Transmission Date: 20110219
  Serious: Yes (Hospitalization)
  Sender: FDA-Public Use
  Company Number: OPIR20100023

PATIENT
  Sex: Female

DRUGS (3)
  1. OPANA [Suspect]
     Indication: BREAKTHROUGH PAIN
     Dosage: 10 MG, QID, ORAL
     Route: 048
     Dates: start: 20100301
  2. OPANA ER [Suspect]
     Indication: PAIN
     Dosage: 20 MG, EVERY 12 HOURS, ORAL
     Route: 048
     Dates: start: 20100301
  3. VITAMIN B-12 [Concomitant]

REACTIONS (6)
  - BLOOD PRESSURE DECREASED [None]
  - COMA [None]
  - CYANOSIS [None]
  - JOINT SWELLING [None]
  - OEDEMA PERIPHERAL [None]
  - OVERDOSE [None]
